FAERS Safety Report 9221487 (Version 5)
Quarter: 2013Q3

REPORT INFORMATION
  Report Type: Spontaneous
  Country: JP (occurrence: None)
  Receive Date: 20130408
  Receipt Date: 20130719
  Transmission Date: 20140515
  Serious: Yes (Hospitalization)
  Sender: FDA-Public Use
  Company Number: TCI2013A01777

PATIENT
  Age: 51 Year
  Sex: Male

DRUGS (4)
  1. LANSAP [Suspect]
     Indication: HELICOBACTER INFECTION
     Dosage: 1 CARD (0.5 CARD, 2 IN 1 D)
     Route: 048
     Dates: start: 20120618, end: 20120624
  2. ALLOID G [Concomitant]
  3. ICROL (CIMETIDINE) [Concomitant]
  4. ECABET NA (ECABET MONOSODIUM) [Concomitant]

REACTIONS (3)
  - Nephrotic syndrome [None]
  - Fatigue [None]
  - Oedema peripheral [None]
